FAERS Safety Report 21795867 (Version 2)
Quarter: 2023Q1

REPORT INFORMATION
  Report Type: Spontaneous
  Country: CL (occurrence: CL)
  Receive Date: 20221229
  Receipt Date: 20230111
  Transmission Date: 20230417
  Serious: Yes (Life-Threatening, Hospitalization)
  Sender: FDA-Public Use
  Company Number: CL-TEVA-2022-CL-2840288

PATIENT
  Age: 4 Month
  Sex: Male

DRUGS (3)
  1. SILDENAFIL [Suspect]
     Active Substance: SILDENAFIL
     Indication: Interstitial lung disease
     Dosage: 4 MG/KG DAILY;
     Route: 065
  2. HYDROXYCHLOROQUINE [Suspect]
     Active Substance: HYDROXYCHLOROQUINE
     Indication: Interstitial lung disease
     Dosage: 10 MG/KG DAILY;
     Route: 065
  3. NITRIC OXIDE [Suspect]
     Active Substance: NITRIC OXIDE
     Indication: Interstitial lung disease
     Dosage: UP TO 20 PPM FOR 15 DAYS
     Route: 055

REACTIONS (1)
  - Drug ineffective [Unknown]
